FAERS Safety Report 14151552 (Version 1)
Quarter: 2017Q4

REPORT INFORMATION
  Report Type: Spontaneous
  Country: US (occurrence: None)
  Receive Date: 20171101
  Receipt Date: 20171101
  Transmission Date: 20180321
  Serious: Yes (Hospitalization)
  Sender: FDA-Public Use
  Company Number: None

PATIENT
  Age: 76 Year
  Sex: Male

DRUGS (1)
  1. AMIODARONE [Suspect]
     Active Substance: AMIODARONE
     Indication: PULMONARY FIBROSIS
     Dates: start: 20170508, end: 20170727

REACTIONS (1)
  - Pulmonary fibrosis [None]

NARRATIVE: CASE EVENT DATE: 20170922
